FAERS Safety Report 6065252-3 (Version None)
Quarter: 2009Q1

REPORT INFORMATION
  Report Type: 
  Country: None (occurrence: None)
  Receive Date: 20090204
  Receipt Date: 20090126
  Transmission Date: 20090719
  Serious: Yes (Other)
  Sender: FDA-Public Use
  Company Number: PHEH2009US00492

PATIENT
  Sex: Female
  Weight: 59.592 kg

DRUGS (6)
  1. RECLAST [Suspect]
     Indication: OSTEOPOROSIS POSTMENOPAUSAL
     Dosage: 5 MG, UNK
     Route: 042
     Dates: start: 20081219
  2. METFORMIN [Concomitant]
     Dosage: 500 MG, BID
     Route: 048
  3. LIPITOR [Concomitant]
     Dosage: 40 MG, QD
     Route: 048
     Dates: start: 20080801
  4. VITAMIN D [Concomitant]
     Dosage: 50000 U, QW
     Route: 048
  5. BENICAR HCT [Concomitant]
     Dosage: 25/40 UNK, QD
     Route: 048
  6. SLO-MAG [Concomitant]
     Dosage: 64 MG, QD
     Route: 048

REACTIONS (12)
  - ARTHRALGIA [None]
  - BLOOD CALCIUM INCREASED [None]
  - BLOOD ELECTROLYTES DECREASED [None]
  - FEELING COLD [None]
  - GASTROINTESTINAL DISORDER [None]
  - HYPOVOLAEMIA [None]
  - LABORATORY TEST ABNORMAL [None]
  - MALAISE [None]
  - NAUSEA [None]
  - PAIN IN EXTREMITY [None]
  - PYREXIA [None]
  - VOMITING [None]
